FAERS Safety Report 21169649 (Version 1)
Quarter: 2022Q3

REPORT INFORMATION
  Report Type: Spontaneous
  Country: GB (occurrence: GB)
  Receive Date: 20220804
  Receipt Date: 20220804
  Transmission Date: 20221027
  Serious: Yes (Hospitalization, Other)
  Sender: FDA-Public Use
  Company Number: None

PATIENT
  Age: 36 Year
  Sex: Female

DRUGS (1)
  1. NEXPLANON [Suspect]
     Active Substance: ETONOGESTREL
     Dosage: 68 MILLIGRAM
     Route: 059
     Dates: start: 20190629

REACTIONS (4)
  - Deep vein thrombosis [Unknown]
  - Pulmonary embolism [Not Recovered/Not Resolved]
  - Atelectasis [Unknown]
  - Embolism venous [Not Recovered/Not Resolved]

NARRATIVE: CASE EVENT DATE: 20220531
